FAERS Safety Report 5377587-8 (Version None)
Quarter: 2007Q3

REPORT INFORMATION
  Report Type: 
  Country: None (occurrence: None)
  Receive Date: 20070703
  Receipt Date: 20070620
  Transmission Date: 20080115
  Serious: Yes (Death)
  Sender: FDA-Public Use
  Company Number: JP-SHR-JP-2007-023656

PATIENT
  Age: 70 Year
  Sex: Male

DRUGS (4)
  1. SOTALOL HCL [Suspect]
     Indication: VENTRICULAR TACHYCARDIA
     Dosage: 40 MG, 2X/DAY
     Route: 048
     Dates: start: 20060202, end: 20060203
  2. DOPAMINE HCL [Concomitant]
     Dosage: UNK, UNK
     Route: 042
     Dates: start: 20060118, end: 20060314
  3. HANP [Concomitant]
     Route: 042
     Dates: start: 20060118, end: 20060203
  4. LASIX [Concomitant]
     Route: 042
     Dates: start: 20060119, end: 20060314

REACTIONS (2)
  - BLOOD PRESSURE DECREASED [None]
  - BRADYCARDIA [None]
